FAERS Safety Report 18196058 (Version 1)
Quarter: 2020Q3

REPORT INFORMATION
  Report Type: Spontaneous
  Country: CA (occurrence: CA)
  Receive Date: 20200825
  Receipt Date: 20200825
  Transmission Date: 20201103
  Serious: Yes (Life-Threatening, Hospitalization)
  Sender: FDA-Public Use
  Company Number: CA-TEVA-2020-CA-1817471

PATIENT
  Age: 8 Month
  Sex: Male
  Weight: 8 kg

DRUGS (7)
  1. CARBOPLATIN. [Suspect]
     Active Substance: CARBOPLATIN
     Indication: NEUROBLASTOMA
     Route: 042
  2. ADRIAMYCIN [Suspect]
     Active Substance: DOXORUBICIN HYDROCHLORIDE
     Indication: NEUROBLASTOMA
     Route: 042
  3. SEPTRA [Concomitant]
     Active Substance: SULFAMETHOXAZOLE\TRIMETHOPRIM
  4. LANSOPRAZOLE. [Concomitant]
     Active Substance: LANSOPRAZOLE
  5. FILGRASTIM [Concomitant]
     Active Substance: FILGRASTIM
  6. ONDANSETRON [Concomitant]
     Active Substance: ONDANSETRON
  7. VEPESID [Suspect]
     Active Substance: ETOPOSIDE
     Indication: NEUROBLASTOMA
     Dosage: 36 MILLIGRAM DAILY;
     Route: 042

REACTIONS (3)
  - Neutropenia [Unknown]
  - Pyrexia [Unknown]
  - Post procedural haemorrhage [Unknown]
